FAERS Safety Report 9847464 (Version 2)
Quarter: 2014Q4

REPORT INFORMATION
  Report Type: Report from Study
  Country: BR (occurrence: BR)
  Receive Date: 20140127
  Receipt Date: 20141119
  Transmission Date: 20150529
  Serious: Yes (Other)
  Sender: FDA-Public Use
  Company Number: BR-BRISTOL-MYERS SQUIBB COMPANY-20075982

PATIENT
  Age: 51 Year
  Sex: Female

DRUGS (1)
  1. ORENCIA [Suspect]
     Active Substance: ABATACEPT
     Indication: RHEUMATOID ARTHRITIS
     Dosage: 1 INFUSION
     Route: 042
     Dates: start: 20131218

REACTIONS (2)
  - Pneumonia [Recovered/Resolved]
  - Hepatic lesion [Recovered/Resolved]
